FAERS Safety Report 24297606 (Version 1)
Quarter: 2024Q3

REPORT INFORMATION
  Report Type: Spontaneous
  Country: US (occurrence: US)
  Receive Date: 20240909
  Receipt Date: 20240909
  Transmission Date: 20241016
  Serious: No
  Sender: SANDOZ
  Company Number: US-002147023-NVSC2023US270482

PATIENT
  Age: 75 Year
  Sex: Female

DRUGS (5)
  1. CARVEDILOL [Suspect]
     Active Substance: CARVEDILOL
     Indication: Product used for unknown indication
     Dosage: UNK
     Route: 065
  2. ENTRESTO [Suspect]
     Active Substance: SACUBITRIL\VALSARTAN
     Indication: Product used for unknown indication
     Dosage: 1 DOSAGE FORM, BID
     Route: 048
     Dates: start: 20231105
  3. JARDIANCE [Suspect]
     Active Substance: EMPAGLIFLOZIN
     Indication: Product used for unknown indication
     Dosage: UNK
     Route: 065
  4. METOPROLOL [Suspect]
     Active Substance: METOPROLOL
     Indication: Product used for unknown indication
     Dosage: UNK
     Route: 065
     Dates: start: 20231215
  5. CLOPIDOGREL [Concomitant]
     Active Substance: CLOPIDOGREL BISULFATE
     Indication: Product used for unknown indication
     Dosage: UNK, QD
     Route: 065

REACTIONS (11)
  - Fungal infection [Recovered/Resolved]
  - Abdominal pain [Unknown]
  - Joint swelling [Recovered/Resolved]
  - Appetite disorder [Not Recovered/Not Resolved]
  - Wheezing [Recovered/Resolved]
  - Hypotension [Unknown]
  - Asthenia [Unknown]
  - Fatigue [Unknown]
  - Tension [Unknown]
  - Nervousness [Unknown]
  - Alopecia [Unknown]

NARRATIVE: CASE EVENT DATE: 20231201
